FAERS Safety Report 5139355-1 (Version None)
Quarter: 2006Q4

REPORT INFORMATION
  Report Type: 
  Country: None (occurrence: None)
  Receive Date: 20061026
  Receipt Date: 20061026
  Transmission Date: 20070319
  Serious: Yes (Life-Threatening, Other)
  Sender: FDA-Public Use
  Company Number: None

PATIENT
  Sex: Male
  Weight: 79.8331 kg

DRUGS (3)
  1. TAXOL [Suspect]
     Indication: NON-SMALL CELL LUNG CANCER
     Dosage: 175MG/M2=350MG IN NS 250MLS   X 1     IV OVER 3 HOURS
     Route: 042
     Dates: start: 20060321
  2. DECADRON [Concomitant]
  3. ZOFRAN [Concomitant]

REACTIONS (6)
  - DIZZINESS [None]
  - ERYTHEMA [None]
  - GASTRIC DISORDER [None]
  - INFUSION RELATED REACTION [None]
  - NAUSEA [None]
  - VOMITING [None]
